FAERS Safety Report 7737845-6 (Version None)
Quarter: 2011Q3

REPORT INFORMATION
  Report Type: 
  Country: None (occurrence: None)
  Receive Date: 20110908
  Receipt Date: 20110831
  Transmission Date: 20111222
  Serious: Yes (Other)
  Sender: FDA-Public Use
  Company Number: PHHY2009CA50603

PATIENT
  Sex: Male

DRUGS (4)
  1. SANDOSTATIN LAR [Suspect]
     Dosage: 20 MG, EVERY 25 DAYS
     Route: 030
  2. SANDOSTATIN LAR [Suspect]
     Indication: METASTATIC CARCINOID TUMOUR
     Dosage: 20 MG, EVERY 4 WEEKS
     Route: 030
     Dates: start: 20090527
  3. SANDOSTATIN LAR [Suspect]
     Dosage: 20 MG (UNITS NOT SPECIFIED)
     Route: 030
  4. SANDOSTATIN LAR [Suspect]
     Dosage: 30 MG, ONCE A MONTH
     Route: 048

REACTIONS (11)
  - FOOD POISONING [None]
  - NAUSEA [None]
  - DIARRHOEA [None]
  - HOT FLUSH [None]
  - DIZZINESS [None]
  - BLOOD PRESSURE SYSTOLIC INCREASED [None]
  - VOMITING [None]
  - INFLUENZA [None]
  - STRESS [None]
  - PAIN [None]
  - ABDOMINAL PAIN UPPER [None]
